FAERS Safety Report 23995578 (Version 1)
Quarter: 2024Q2

REPORT INFORMATION
  Report Type: Report from Study
  Country: DE (occurrence: DE)
  Receive Date: 20240620
  Receipt Date: 20240620
  Transmission Date: 20240716
  Serious: Yes (Other)
  Sender: FDA-Public Use
  Company Number: DE-ABBVIE-5807802

PATIENT
  Age: 26 Year
  Sex: Female
  Weight: 79.4 kg

DRUGS (2)
  1. RISANKIZUMAB [Suspect]
     Active Substance: RISANKIZUMAB
     Indication: Crohn^s disease
     Route: 042
     Dates: start: 20240521, end: 20240521
  2. RISANKIZUMAB [Suspect]
     Active Substance: RISANKIZUMAB
     Indication: Crohn^s disease
     Route: 042
     Dates: start: 20240618, end: 20240618

REACTIONS (5)
  - Pyoderma gangrenosum [Not Recovered/Not Resolved]
  - Depressed mood [Recovered/Resolved]
  - Nasopharyngitis [Recovered/Resolved]
  - Listless [Recovered/Resolved]
  - Nausea [Recovered/Resolved]

NARRATIVE: CASE EVENT DATE: 20240521
